FAERS Safety Report 9767603 (Version 2)
Quarter: 2014Q1

REPORT INFORMATION
  Report Type: Spontaneous
  Country: US (occurrence: US)
  Receive Date: 20131217
  Receipt Date: 20140128
  Transmission Date: 20141002
  Serious: No
  Sender: FDA-Public Use
  Company Number: US-009507513-1312USA006592

PATIENT
  Sex: Male

DRUGS (1)
  1. NASONEX [Suspect]
     Indication: INFLAMMATION
     Dosage: 2 SPRAYS IN EACH NOSTRIL ONCE DAILY
     Route: 045

REACTIONS (3)
  - Drug dose omission [Unknown]
  - Product quality issue [Unknown]
  - No adverse event [Unknown]
